FAERS Safety Report 20393371 (Version 2)
Quarter: 2022Q1

REPORT INFORMATION
  Report Type: Report from Study
  Country: US (occurrence: US)
  Receive Date: 20220128
  Receipt Date: 20220330
  Transmission Date: 20220423
  Serious: Yes (Other)
  Sender: FDA-Public Use
  Company Number: US-NOVARTISPH-NVSC2022US013920

PATIENT
  Sex: Male

DRUGS (1)
  1. COSENTYX [Suspect]
     Active Substance: SECUKINUMAB
     Indication: Product used for unknown indication
     Dosage: 150 MG, ONCE/SINGLE (ONE SINGLE DOSE)
     Route: 058
     Dates: start: 202110

REACTIONS (4)
  - Anaphylactic shock [Unknown]
  - Swollen tongue [Unknown]
  - Loss of consciousness [Unknown]
  - Pyrexia [Unknown]
